FAERS Safety Report 9921363 (Version 1)
Quarter: 2014Q1

REPORT INFORMATION
  Report Type: Spontaneous
  Country: US (occurrence: None)
  Receive Date: 20140221
  Receipt Date: 20140221
  Transmission Date: 20141002
  Serious: Yes (Hospitalization)
  Sender: FDA-Public Use
  Company Number: None

PATIENT
  Age: 75 Year
  Sex: Male
  Weight: 84.2 kg

DRUGS (2)
  1. RIVAROXABAN [Suspect]
     Indication: ATRIAL FIBRILLATION
     Route: 048
     Dates: start: 20140109, end: 20140127
  2. INDOMETHACIN [Suspect]
     Indication: GOUT
     Dosage: 50 TID PO
     Route: 048
     Dates: start: 20140123, end: 20140127

REACTIONS (4)
  - Haemorrhage [None]
  - Anaemia [None]
  - Diverticulum [None]
  - Melaena [None]
